FAERS Safety Report 7590470-2 (Version None)
Quarter: 2011Q3

REPORT INFORMATION
  Report Type: 
  Country: None (occurrence: None)
  Receive Date: 20110705
  Receipt Date: 20110629
  Transmission Date: 20111222
  Serious: Yes (Other)
  Sender: FDA-Public Use
  Company Number: ZA-PFIZER INC-2011140666

PATIENT
  Sex: Male

DRUGS (4)
  1. ZOLOFT [Suspect]
     Dosage: 50 MG, UNK
     Route: 064
     Dates: start: 20090610
  2. ZOLOFT [Suspect]
     Dosage: 100 MG, UNK
     Route: 064
     Dates: start: 20101117
  3. ZOLOFT [Suspect]
     Dosage: 75 MG, UNK
     Route: 064
     Dates: start: 20100818
  4. SEROQUEL XR [Concomitant]
     Dosage: 50 MG, 1X/DAY AT NIGHT
     Route: 064
     Dates: start: 20101117

REACTIONS (2)
  - PREMATURE BABY [None]
  - MATERNAL EXPOSURE DURING PREGNANCY [None]
